FAERS Safety Report 17072657 (Version 1)
Quarter: 2019Q4

REPORT INFORMATION
  Report Type: Spontaneous
  Country: DE (occurrence: DE)
  Receive Date: 20191125
  Receipt Date: 20191125
  Transmission Date: 20200122
  Serious: Yes (Hospitalization)
  Sender: FDA-Public Use
  Company Number: DE-MYLANLABS-2019M1113146

PATIENT
  Age: 74 Year
  Sex: Male

DRUGS (14)
  1. METFORMIN [Concomitant]
     Active Substance: METFORMIN HYDROCHLORIDE
     Dosage: 1000 MG, 1-0-0-1
  2. ASPIRIN. [Concomitant]
     Active Substance: ASPIRIN
     Dosage: 100 MG, 0-1-0-0
  3. XIPAMID [Concomitant]
     Active Substance: XIPAMIDE
     Dosage: 10 MG, 1-0-0-0
  4. NAC                                /00082801/ [Concomitant]
     Active Substance: ACETYLCYSTEINE
     Dosage: 600 MG, 1-1-0-0
  5. OPIPRAMOL [Concomitant]
     Active Substance: OPIPRAMOL
     Dosage: 50 MG, 0-0-0-1
  6. ATROVENT [Concomitant]
     Active Substance: IPRATROPIUM BROMIDE
     Dosage: 20 HUB, 1-1-1-1
  7. SOLEDUM [Concomitant]
     Active Substance: EUCALYPTOL
     Dosage: 2-0-2-0
  8. NITRENDIPIN [Concomitant]
     Active Substance: NITRENDIPINE
     Dosage: 20 MG, 1-0-1-0
  9. TORASEMID [Concomitant]
     Active Substance: TORSEMIDE
     Dosage: 10 MG, 1.5-1-0-0
  10. RAMIPRIL. [Concomitant]
     Active Substance: RAMIPRIL
     Dosage: 5 MG, 1-0-0-1
  11. METOPROLOL. [Suspect]
     Active Substance: METOPROLOL
     Indication: PRODUCT USED FOR UNKNOWN INDICATION
     Dosage: 47.5 MG, 1-0-0-0
  12. SALBUTAMOL [Concomitant]
     Active Substance: ALBUTEROL
     Dosage: 5 GTT, 1-1-1-1
  13. INSULIN [Concomitant]
     Active Substance: INSULIN NOS
     Dosage: NACH SCHEMA
  14. EPLERENONE. [Concomitant]
     Active Substance: EPLERENONE
     Dosage: 25 MG, 1-0-0-0

REACTIONS (3)
  - Product prescribing error [Unknown]
  - Dyspnoea [Unknown]
  - Cough [Unknown]
